FAERS Safety Report 10187057 (Version 2)
Quarter: 2014Q2

REPORT INFORMATION
  Report Type: Report from Study
  Country: DE (occurrence: DE)
  Receive Date: 20140522
  Receipt Date: 20140522
  Transmission Date: 20141212
  Serious: Yes (Hospitalization, Other)
  Sender: FDA-Public Use
  Company Number: DE-ROCHE-768537

PATIENT
  Age: 70 Year
  Sex: Male
  Weight: 93 kg

DRUGS (6)
  1. BEVACIZUMAB [Suspect]
     Indication: RECTAL CANCER METASTATIC
     Route: 042
  2. NOVAMINSULFON [Concomitant]
     Route: 048
  3. CAMPTO [Concomitant]
     Indication: RECTAL CANCER METASTATIC
     Route: 042
  4. 5-FU [Concomitant]
     Indication: RECTAL CANCER METASTATIC
     Route: 042
     Dates: start: 20110316, end: 20110317
  5. 5-FU [Concomitant]
     Route: 042
     Dates: start: 20110318, end: 20110318
  6. FOLINIC ACID [Concomitant]
     Indication: RECTAL CANCER METASTATIC
     Route: 042
     Dates: start: 20110316, end: 20110317

REACTIONS (2)
  - Cystitis haemorrhagic [Not Recovered/Not Resolved]
  - Dysuria [Unknown]
